FAERS Safety Report 9186898 (Version 1)
Quarter: 2013Q1

REPORT INFORMATION
  Report Type: Spontaneous
  Country: AR (occurrence: AR)
  Receive Date: 20130325
  Receipt Date: 20130325
  Transmission Date: 20140127
  Serious: Yes (Death)
  Sender: FDA-Public Use
  Company Number: AR-GLAXOSMITHKLINE-A0999596A

PATIENT
  Age: 5 Year
  Sex: Female
  Weight: 17 kg

DRUGS (2)
  1. VENTOLIN [Suspect]
     Indication: RESPIRATORY DISTRESS
     Dosage: 10DROP SIX TIMES PER DAY
     Route: 055
     Dates: start: 20121022, end: 20121023
  2. ANTIBIOTICS [Concomitant]
     Indication: RESPIRATORY DISTRESS
     Route: 065

REACTIONS (1)
  - Pneumonia [Fatal]
